FAERS Safety Report 6302018-0 (Version None)
Quarter: 2009Q3

REPORT INFORMATION
  Report Type: 
  Country: None (occurrence: None)
  Receive Date: 20090807
  Receipt Date: 20090731
  Transmission Date: 20100115
  Serious: Yes (Death)
  Sender: FDA-Public Use
  Company Number: PE-PFIZER INC-2009237330

PATIENT
  Age: 75 Year

DRUGS (3)
  1. XANAX XR [Suspect]
     Indication: DEPRESSION
     Dosage: UNK
     Dates: start: 20090331, end: 20090611
  2. XANAX XR [Suspect]
     Indication: PANIC ATTACK
  3. MIRTAZAPINE [Concomitant]

REACTIONS (1)
  - CARDIAC ARREST [None]
